FAERS Safety Report 20705597 (Version 1)
Quarter: 2022Q2

REPORT INFORMATION
  Report Type: Spontaneous
  Country: GB (occurrence: GB)
  Receive Date: 20220413
  Receipt Date: 20220413
  Transmission Date: 20220721
  Serious: Yes (Disabling)
  Sender: FDA-Public Use
  Company Number: None

PATIENT
  Age: 79 Year
  Sex: Male
  Weight: 76 kg

DRUGS (9)
  1. DONEPEZIL [Suspect]
     Active Substance: DONEPEZIL
     Indication: Ill-defined disorder
     Dosage: DOSE UNKNOWN, ONCE A DAY
     Route: 048
     Dates: start: 20211201, end: 20220131
  2. DONEPEZIL [Suspect]
     Active Substance: DONEPEZIL
     Dosage: DOSE AND FREQUENCY UNKNOWN
     Route: 048
     Dates: start: 20220404
  3. ADCAL [Concomitant]
     Indication: Ill-defined disorder
     Dosage: DOSE UNKNOWN, EVERY 12 HOURS
     Route: 065
     Dates: start: 20210513, end: 20220131
  4. BROMFENAC [Concomitant]
     Active Substance: BROMFENAC SODIUM
     Indication: Ill-defined disorder
     Dosage: DOSE UNKNOWN (ONE DROP), 4 TIMES A DAY IN THE LEFT EYE
     Route: 047
     Dates: start: 20210301
  5. DEXAMETHASONE [Concomitant]
     Active Substance: DEXAMETHASONE
     Indication: Ill-defined disorder
     Dosage: DOSE UNKNOWN (ONE DROP), EVERY 4 HOURS IN LEFT EYE
     Route: 065
     Dates: start: 20210301
  6. FELODIPINE [Concomitant]
     Active Substance: FELODIPINE
     Indication: Ill-defined disorder
     Dosage: DOSE UNKNOWN, ONCE A DAY
     Route: 065
     Dates: start: 20210301
  7. OMEPRAZOLE [Concomitant]
     Active Substance: OMEPRAZOLE
     Indication: Ill-defined disorder
     Dosage: DOSE UNKNOWN, EVERY 12 HOURS
     Route: 065
     Dates: start: 20210301
  8. ACETAMINOPHEN [Concomitant]
     Active Substance: ACETAMINOPHEN
     Indication: Ill-defined disorder
     Dosage: DOSE UNKNOWN, AS NEEDED (UP TO 2)
     Route: 065
     Dates: start: 20220131, end: 20220204
  9. URSODIOL [Concomitant]
     Active Substance: URSODIOL
     Indication: Ill-defined disorder
     Dosage: DOSE UNKNOWN, THREE TIMES A DAY
     Route: 065
     Dates: start: 20210301, end: 20220321

REACTIONS (1)
  - Arthralgia [Recovered/Resolved]

NARRATIVE: CASE EVENT DATE: 20220404
